FAERS Safety Report 13544680 (Version 1)
Quarter: 2017Q2

REPORT INFORMATION
  Report Type: Spontaneous
  Country: US (occurrence: US)
  Receive Date: 20170515
  Receipt Date: 20170515
  Transmission Date: 20170830
  Serious: Yes (Disabling)
  Sender: FDA-Public Use
  Company Number: US-LPDUSPRD-20140772

PATIENT
  Sex: Female

DRUGS (1)
  1. PROGESTERONE INJECTION (0750-01) [Suspect]
     Active Substance: PROGESTERONE
     Dosage: DOSE UNKNOWN
     Route: 051
     Dates: start: 20141117, end: 20141117

REACTIONS (4)
  - Bed rest [Not Recovered/Not Resolved]
  - Exposure during pregnancy [Unknown]
  - Unevaluable event [Unknown]
  - Wrong drug administered [Unknown]

NARRATIVE: CASE EVENT DATE: 20141117
